FAERS Safety Report 8081482-3 (Version None)
Quarter: 2012Q1

REPORT INFORMATION
  Report Type: 
  Country: None (occurrence: None)
  Receive Date: 20120130
  Receipt Date: 20120117
  Transmission Date: 20120608
  Serious: Yes (Other)
  Sender: FDA-Public Use
  Company Number: PHHY2012IT004528

PATIENT
  Age: 60 Year
  Sex: Female

DRUGS (2)
  1. IMATINIB MESYLATE [Suspect]
     Indication: CHRONIC MYELOID LEUKAEMIA
     Dosage: 400 MG, DAILY
     Route: 048
  2. IMATINIB MESYLATE [Suspect]
     Dosage: 400 MG, DAILY

REACTIONS (6)
  - PARAKERATOSIS [None]
  - RASH ERYTHEMATOUS [None]
  - LICHENIFICATION [None]
  - FACE OEDEMA [None]
  - PHOTOSENSITIVITY REACTION [None]
  - ACANTHOSIS [None]
